FAERS Safety Report 18579336 (Version 1)
Quarter: 2020Q4

REPORT INFORMATION
  Report Type: Spontaneous
  Country: US (occurrence: US)
  Receive Date: 20201204
  Receipt Date: 20201204
  Transmission Date: 20210114
  Serious: No
  Sender: FDA-Public Use
  Company Number: US-009507513-2012USA001792

PATIENT
  Sex: Male

DRUGS (1)
  1. PROPECIA [Suspect]
     Active Substance: FINASTERIDE
     Dosage: 6 MONTHS AGO
     Dates: start: 202006

REACTIONS (5)
  - Agitation [Unknown]
  - Depression [Unknown]
  - Lower urinary tract symptoms [Unknown]
  - Aggression [Unknown]
  - Adverse event [Unknown]

NARRATIVE: CASE EVENT DATE: 2020
